FAERS Safety Report 9266998 (Version 1)
Quarter: 2013Q2

REPORT INFORMATION
  Report Type: Spontaneous
  Country: US (occurrence: US)
  Receive Date: 20130502
  Receipt Date: 20130502
  Transmission Date: 20140414
  Serious: No
  Sender: FDA-Public Use
  Company Number: US-PFIZER INC-2013131581

PATIENT
  Age: 50 Year
  Sex: Male
  Weight: 68.9 kg

DRUGS (2)
  1. ADVIL [Suspect]
     Indication: MYALGIA
     Dosage: 200 MG, ONCE A DAY
     Route: 048
     Dates: start: 20130422, end: 20130424
  2. RAMIPRIL [Concomitant]
     Indication: HYPERTENSION
     Dosage: UNK, EVERY ALTERNATE DAY
     Dates: start: 2004

REACTIONS (1)
  - Epistaxis [Recovered/Resolved]
